FAERS Safety Report 18981286 (Version 1)
Quarter: 2021Q1

REPORT INFORMATION
  Report Type: Spontaneous
  Country: US (occurrence: US)
  Receive Date: 20210306
  Receipt Date: 20210306
  Transmission Date: 20210420
  Serious: Yes (Hospitalization)
  Sender: FDA-Public Use
  Company Number: None

PATIENT
  Age: 48 Year
  Sex: Male
  Weight: 95.8 kg

DRUGS (9)
  1. CAMPTOSAR [Suspect]
     Active Substance: IRINOTECAN HYDROCHLORIDE
     Dates: end: 20210302
  2. EMLA TOPICAL CREAM [Concomitant]
  3. OXYCODONE [Concomitant]
     Active Substance: OXYCODONE
  4. GABBAPENTIN [Concomitant]
     Active Substance: GABAPENTIN
  5. SENNA [Concomitant]
     Active Substance: SENNA LEAF\SENNOSIDES\SENNOSIDES A AND B
  6. LOPERAMIDE [Concomitant]
     Active Substance: LOPERAMIDE
  7. XARELTO [Concomitant]
     Active Substance: RIVAROXABAN
  8. MENTHOL?ZINC OXIDE [Concomitant]
  9. MORPHINE [Concomitant]
     Active Substance: MORPHINE

REACTIONS (3)
  - Dysuria [None]
  - Contrast media allergy [None]
  - Pain [None]

NARRATIVE: CASE EVENT DATE: 20210303
